FAERS Safety Report 10006637 (Version 3)
Quarter: 2014Q2

REPORT INFORMATION
  Report Type: Spontaneous
  Country: US (occurrence: US)
  Receive Date: 20140313
  Receipt Date: 20140626
  Transmission Date: 20141212
  Serious: Yes (Other)
  Sender: FDA-Public Use
  Company Number: US-PFIZER INC-2014073085

PATIENT
  Age: 53 Year
  Sex: Female
  Weight: 83.9 kg

DRUGS (9)
  1. LYRICA [Suspect]
     Indication: FIBROMYALGIA
     Dosage: 150 MG (THREE CAPSULES 50MG), 2X/DAY
     Route: 048
     Dates: start: 2009
  2. FLUOXETINE [Concomitant]
     Indication: DEPRESSION
     Dosage: 60 MG, DAILY
  3. FLEXERIL [Concomitant]
     Dosage: 10 MG, 1X/DAY
  4. NASONEX [Concomitant]
     Dosage: 50 MG/ACT, 2 SPRAYS IN EACH NOSTRIL ,1X/DAY
  5. PROZAC [Concomitant]
     Dosage: 20 MG 3 CAPSULE IN MORNING, 1X/DAY
  6. REMERON [Concomitant]
     Dosage: 15 MG, 1X/DAY
  7. BUSPIRONE HYDROCHLORIDE [Concomitant]
     Dosage: 5 MG, 2X/DAY
  8. OMEPRAZOLE [Concomitant]
     Dosage: 20 MG, 1X/DAY
  9. NAPROXEN [Concomitant]
     Dosage: 500 MG, AS NEEDED, EVERY 12 HOURS
     Route: 048

REACTIONS (8)
  - Suicidal ideation [Unknown]
  - Paraesthesia [Unknown]
  - Hypoaesthesia [Unknown]
  - Arthralgia [Unknown]
  - Myalgia [Unknown]
  - Hypergammaglobulinaemia [Unknown]
  - Vitamin D deficiency [Unknown]
  - Nephrolithiasis [Unknown]
